FAERS Safety Report 8390721-0 (Version None)
Quarter: 2012Q2

REPORT INFORMATION
  Report Type: 
  Country: None (occurrence: None)
  Receive Date: 20120529
  Receipt Date: 20120524
  Transmission Date: 20120825
  Serious: Yes (Death, Other)
  Sender: FDA-Public Use
  Company Number: US-BAYER-200940679NA

PATIENT
  Age: 73 Year
  Sex: Female
  Weight: 90.703 kg

DRUGS (22)
  1. NITROGLYCERIN [Concomitant]
  2. FENTANYL [Concomitant]
     Indication: PREMEDICATION
     Dosage: 50MCG GIVEN 4 TIMES
     Route: 042
  3. VANCOMYCIN [Concomitant]
     Indication: PREMEDICATION
     Dosage: 1GM
     Route: 042
  4. NITROGLYCERIN [Concomitant]
  5. HYDROCHLOROTHIAZIDE [Concomitant]
  6. DIAZEPAM [Concomitant]
  7. MILRINONE [Concomitant]
     Dosage: UNK
     Dates: start: 20050707
  8. TRASYLOL [Suspect]
     Indication: CORONARY ARTERY BYPASS
     Dosage: TEST DOSE: 5 GRAMS AMICAR LOADING DOSE: 200CC FOLLOWED BY 50CC/HR
     Route: 042
     Dates: start: 20050707, end: 20050707
  9. LASIX [Concomitant]
  10. HEPARIN [Concomitant]
     Dosage: UNK
     Dates: start: 20050707
  11. TRASYLOL [Suspect]
     Indication: PRODUCT USED FOR UNKNOWN INDICATION
     Route: 042
     Dates: start: 20050612
  12. LACTULOSE [Concomitant]
  13. MANNITOL [Concomitant]
     Dosage: UNK
     Dates: start: 20050707
  14. REGLAN [Concomitant]
     Indication: PREMEDICATION
     Route: 042
  15. LEVOPHED [Concomitant]
     Dosage: UNK
     Dates: start: 20050707
  16. ZOLOFT [Concomitant]
  17. MIDAZOLAM [Concomitant]
     Dosage: UNK
     Dates: start: 20050707
  18. MAGNESIUM SULFATE [Concomitant]
     Dosage: UNK
     Dates: start: 20050707
  19. CARDIOPLEGIA [Concomitant]
     Dosage: UNK
     Dates: start: 20050707
  20. PROTONIX [Concomitant]
  21. FAMOTIDINE [Concomitant]
     Indication: PREMEDICATION
     Dosage: 20MG GIVEN TWICE
     Route: 042
  22. INSULIN [Concomitant]
     Dosage: UNK
     Dates: start: 20050707

REACTIONS (13)
  - DEATH [None]
  - RENAL INJURY [None]
  - EMOTIONAL DISTRESS [None]
  - INJURY [None]
  - RENAL IMPAIRMENT [None]
  - RENAL FAILURE [None]
  - ANXIETY [None]
  - PAIN [None]
  - STRESS [None]
  - MULTI-ORGAN FAILURE [None]
  - UNEVALUABLE EVENT [None]
  - FEAR [None]
  - ANHEDONIA [None]
